FAERS Safety Report 4638300-2 (Version None)
Quarter: 2005Q2

REPORT INFORMATION
  Report Type: 
  Country: None (occurrence: None)
  Receive Date: 20050415
  Receipt Date: 20050406
  Transmission Date: 20051028
  Serious: Yes (Other)
  Sender: FDA-Public Use
  Company Number: 2005032999

PATIENT
  Age: 37 Year
  Sex: Female
  Weight: 59 kg

DRUGS (2)
  1. VIRACEPT [Suspect]
     Indication: ACCIDENTAL EXPOSURE
     Dosage: 2250 MG (2250 MG, QD), ORAL
     Route: 048
     Dates: start: 20040924, end: 20041008
  2. LAMIVUDINE AND ZIDOVUDINE [Concomitant]

REACTIONS (1)
  - CYTOLYTIC HEPATITIS [None]
